FAERS Safety Report 9214940 (Version 1)
Quarter: 2013Q2

REPORT INFORMATION
  Report Type: Report from Study
  Country: AU (occurrence: AU)
  Receive Date: 20130405
  Receipt Date: 20130405
  Transmission Date: 20140414
  Serious: Yes (Life-Threatening, Hospitalization)
  Sender: FDA-Public Use
  Company Number: AU-AMGEN-US266786

PATIENT
  Age: 86 Year
  Sex: Male

DRUGS (8)
  1. DENOSUMAB [Suspect]
     Indication: PROSTATE CANCER
     Dosage: UNK UNK, Q4WK
     Route: 058
     Dates: start: 20070330, end: 20080205
  2. CHLORTHALIDONE [Suspect]
     Dosage: 2 MG, QD
     Route: 048
     Dates: start: 2004, end: 20071221
  3. TRANDOLAPRIL [Suspect]
     Dosage: 2 MG, QD
     Route: 048
     Dates: start: 2004, end: 20080222
  4. DICLOFENAC SODIUM [Concomitant]
     Dosage: 150 MG, QD
     Route: 048
  5. ERGOCALCIFEROL [Concomitant]
     Dosage: 1000 IU, UNK
     Dates: end: 20070416
  6. PARACETAMOL [Concomitant]
     Dosage: 1 G, PRN
     Route: 048
     Dates: start: 20080221
  7. BRIMONIDINE TARTRATE [Concomitant]
     Dosage: UNK UNK, QD
     Route: 047
     Dates: start: 20070404
  8. TIMOLOL MALEATE [Concomitant]
     Dosage: UNK UNK, QD
     Route: 047
     Dates: start: 2003

REACTIONS (2)
  - Complex partial seizures [Recovered/Resolved with Sequelae]
  - Bradycardia [Recovered/Resolved]
